FAERS Safety Report 9158733 (Version 2)
Quarter: 2013Q2

REPORT INFORMATION
  Report Type: Report from Study
  Country: US (occurrence: US)
  Receive Date: 20130312
  Receipt Date: 20130604
  Transmission Date: 20140414
  Serious: Yes (Other)
  Sender: FDA-Public Use
  Company Number: US-US-EMD SERONO, INC.-7198426

PATIENT
  Age: 0 Year
  Sex: Male

DRUGS (1)
  1. REBIF [Suspect]
     Indication: RELAPSING-REMITTING MULTIPLE SCLEROSIS
     Route: 064

REACTIONS (3)
  - Umbilical cord around neck [Recovered/Resolved]
  - Normal newborn [Recovered/Resolved]
  - Foetal exposure during pregnancy [Recovered/Resolved]
